FAERS Safety Report 24064904 (Version 1)
Quarter: 2024Q3

REPORT INFORMATION
  Report Type: Spontaneous
  Country: US (occurrence: None)
  Receive Date: 20240708
  Receipt Date: 20240708
  Transmission Date: 20241016
  Serious: Yes (Other)
  Sender: Public
  Company Number: None

PATIENT
  Age: 44 Year
  Sex: Female

DRUGS (1)
  1. NETSPOT [Suspect]
     Active Substance: DOTATATE GALLIUM GA-68
     Indication: Magnetic resonance imaging head
     Dosage: 5.0 MCI MILLICURE(S) INTRAVENOUS
     Route: 042

REACTIONS (5)
  - Chest pain [None]
  - Blood pressure increased [None]
  - Heart rate decreased [None]
  - Drug hypersensitivity [None]
  - Infusion related reaction [None]

NARRATIVE: CASE EVENT DATE: 20240703
